FAERS Safety Report 6453439-7 (Version None)
Quarter: 2009Q4

REPORT INFORMATION
  Report Type: 
  Country: None (occurrence: None)
  Receive Date: 20091124
  Receipt Date: 20091118
  Transmission Date: 20100525
  Serious: Yes (Life-Threatening)
  Sender: FDA-Public Use
  Company Number: IL-ELI_LILLY_AND_COMPANY-IL200911004667

PATIENT
  Age: 60 Year
  Sex: Female

DRUGS (1)
  1. BYETTA [Suspect]
     Dosage: 10 UG, UNK
     Dates: start: 20080801, end: 20090901

REACTIONS (3)
  - BLOOD BILIRUBIN INCREASED [None]
  - PANCREATIC CARCINOMA [None]
  - PRURITUS [None]
